FAERS Safety Report 5573394-1 (Version None)
Quarter: 2007Q4

REPORT INFORMATION
  Report Type: 
  Country: None (occurrence: None)
  Receive Date: 20071220
  Receipt Date: 20071220
  Transmission Date: 20080405
  Serious: No
  Sender: FDA-Public Use
  Company Number: None

PATIENT
  Age: 54 Year
  Sex: Male

DRUGS (1)
  1. INSULIN [Suspect]
     Dates: start: 20071001

REACTIONS (2)
  - PERIORBITAL OEDEMA [None]
  - SKIN EXFOLIATION [None]
